FAERS Safety Report 8617228-7 (Version None)
Quarter: 2012Q3

REPORT INFORMATION
  Report Type: 
  Country: None (occurrence: None)
  Receive Date: 20120823
  Receipt Date: 20120814
  Transmission Date: 20120928
  Serious: Yes (Other)
  Sender: FDA-Public Use
  Company Number: US-ASTRAZENECA-2012SE57597

PATIENT
  Age: 61 Year
  Sex: Female
  Weight: 77.1 kg

DRUGS (9)
  1. ATENOLOL [Concomitant]
     Indication: BLOOD PRESSURE ABNORMAL
     Route: 048
     Dates: end: 20091001
  2. KEPPRA [Concomitant]
     Indication: CONVULSION
     Route: 048
     Dates: start: 20100701
  3. PRILOSEC [Suspect]
     Indication: OESOPHAGEAL PAIN
     Route: 048
     Dates: start: 20090701, end: 20090901
  4. PRILOSEC [Suspect]
     Route: 048
     Dates: start: 20120801, end: 20120801
  5. NORVASC [Concomitant]
     Indication: BLOOD PRESSURE ABNORMAL
     Dosage: GENERIC
     Route: 048
     Dates: start: 20091001
  6. PRILOSEC [Suspect]
     Indication: GASTROOESOPHAGEAL REFLUX DISEASE
     Route: 048
     Dates: start: 20090701, end: 20090901
  7. PRILOSEC [Suspect]
     Route: 048
     Dates: start: 20110601, end: 20110901
  8. PRILOSEC [Suspect]
     Route: 048
     Dates: start: 20120801, end: 20120801
  9. PRILOSEC [Suspect]
     Route: 048
     Dates: start: 20110601, end: 20110901

REACTIONS (7)
  - INTENTIONAL DRUG MISUSE [None]
  - POST-TRAUMATIC EPILEPSY [None]
  - GASTROOESOPHAGEAL REFLUX DISEASE [None]
  - PRURITUS GENERALISED [None]
  - GASTRITIS [None]
  - MUSCLE DISORDER [None]
  - DISABILITY [None]
